FAERS Safety Report 17010719 (Version 1)
Quarter: 2019Q4

REPORT INFORMATION
  Report Type: Spontaneous
  Country: US (occurrence: US)
  Receive Date: 20191107
  Receipt Date: 20191107
  Transmission Date: 20200122
  Serious: Yes (Hospitalization, Other)
  Sender: FDA-Public Use
  Company Number: None

PATIENT
  Age: 76 Year
  Sex: Female
  Weight: 97.8 kg

DRUGS (13)
  1. VANCOMYCIN 1250 MG [Concomitant]
     Dates: start: 20191006, end: 20191007
  2. VANCOMYCIN 750 MG [Concomitant]
     Dates: start: 20191028, end: 20191101
  3. VANCOMYCIN 500 MG [Concomitant]
     Dates: start: 20191007, end: 20191008
  4. VANCOMYCIN 1 G [Concomitant]
     Dates: start: 20191024, end: 20191025
  5. VANCOMYCIN 500 MG [Concomitant]
     Dates: start: 20191022, end: 20191024
  6. FILGRASTIM 300 MCG [Concomitant]
     Dates: start: 20191007, end: 20191029
  7. MEROPENEM 1G [Concomitant]
     Active Substance: MEROPENEM
     Dates: start: 20191010, end: 20191101
  8. DAPTOMYCIN 435 MG [Concomitant]
     Dates: start: 20191008, end: 20191014
  9. SARGRAMOSTIM 475 MCG [Concomitant]
     Dates: start: 20191010, end: 20191013
  10. VANCOMYCIN 750 MG [Concomitant]
     Dates: start: 20191007, end: 20191007
  11. VYXEOS [Suspect]
     Active Substance: CYTARABINE\DAUNORUBICIN
     Indication: ACUTE MYELOID LEUKAEMIA
     Dates: start: 20191001, end: 20191005
  12. DAPTOMYCIN 435 MG [Concomitant]
     Dates: start: 20191016, end: 20191020
  13. FILGRASTIM 480 MCG [Concomitant]
     Dates: start: 20191029, end: 20191101

REACTIONS (9)
  - Skin exfoliation [None]
  - Rash maculo-papular [None]
  - Rash erythematous [None]
  - Flushing [None]
  - Rash pruritic [None]
  - Skin discolouration [None]
  - Dry skin [None]
  - Blood pressure abnormal [None]
  - Febrile neutropenia [None]

NARRATIVE: CASE EVENT DATE: 20191009
